FAERS Safety Report 6467317-0 (Version None)
Quarter: 2009Q4

REPORT INFORMATION
  Report Type: 
  Country: None (occurrence: None)
  Receive Date: 20091202
  Receipt Date: 20091125
  Transmission Date: 20100525
  Serious: Yes (Other)
  Sender: FDA-Public Use
  Company Number: US-ELI_LILLY_AND_COMPANY-US200911007250

PATIENT
  Sex: Female

DRUGS (7)
  1. HUMULIN R [Suspect]
     Indication: DIABETES MELLITUS
     Dosage: 2 U, EACH MORNING
     Dates: start: 20090601
  2. HUMULIN R [Suspect]
     Dosage: 1 U, EACH EVENING
     Dates: start: 20090601
  3. SYNTHROID [Concomitant]
  4. LOPRESSOR [Concomitant]
  5. COZAAR [Concomitant]
  6. XANAX [Concomitant]
  7. PROTONIX [Concomitant]

REACTIONS (5)
  - CYST [None]
  - CYST RUPTURE [None]
  - GASTRIC BYPASS [None]
  - INCISION SITE INFECTION [None]
  - POST PROCEDURAL HAEMORRHAGE [None]
